FAERS Safety Report 18341726 (Version 1)
Quarter: 2020Q4

REPORT INFORMATION
  Report Type: Spontaneous
  Country: CN (occurrence: CN)
  Receive Date: 20201005
  Receipt Date: 20201005
  Transmission Date: 20210113
  Serious: Yes (Other)
  Sender: FDA-Public Use
  Company Number: CN-ROCHE-2687801

PATIENT
  Age: 53 Year
  Sex: Male

DRUGS (11)
  1. AVASTIN [Suspect]
     Active Substance: BEVACIZUMAB
     Indication: ADENOCARCINOMA OF COLON
     Route: 042
     Dates: start: 20190619
  2. OXALIPLATIN. [Concomitant]
     Active Substance: OXALIPLATIN
     Route: 042
     Dates: start: 20191105
  3. CALCIUM LEVOFOLINATE [Concomitant]
     Active Substance: LEVOLEUCOVORIN CALCIUM
     Route: 042
     Dates: start: 20190807
  4. 5-FLUOROURACIL [Concomitant]
     Active Substance: FLUOROURACIL
     Dosage: INTRAVENOUS INJECTION OF 5-FLUOROURACIL AT 0.5G, CONTINUE INTRAVENOUS INFUSION OF 5-FLUOROURACIL AT
     Route: 042
     Dates: start: 20190807
  5. 5-FLUOROURACIL [Concomitant]
     Active Substance: FLUOROURACIL
     Dosage: INTRAVENOUS INJECTION OF 5-FLUOROURACIL AT 0.5G, CONTINUE INTRAVENOUS INFUSION OF 5-FLUOROURACIL AT
     Route: 042
     Dates: start: 20191105
  6. 5-FLUOROURACIL [Concomitant]
     Active Substance: FLUOROURACIL
     Indication: ADENOCARCINOMA OF COLON
     Dosage: INTRAVENOUS INJECTION OF 5-FLUOROURACIL AT 0.5G, CONTINUE INTRAVENOUS INFUSION OF 5-FLUOROURACIL AT
     Route: 042
     Dates: start: 20190619
  7. OXALIPLATIN. [Concomitant]
     Active Substance: OXALIPLATIN
     Indication: ADENOCARCINOMA OF COLON
     Route: 042
     Dates: start: 20190619
  8. CALCIUM LEVOFOLINATE [Concomitant]
     Active Substance: LEVOLEUCOVORIN CALCIUM
     Indication: ADENOCARCINOMA OF COLON
     Route: 042
     Dates: start: 20190619
  9. AVASTIN [Suspect]
     Active Substance: BEVACIZUMAB
     Route: 042
     Dates: start: 20191105
  10. OXALIPLATIN. [Concomitant]
     Active Substance: OXALIPLATIN
     Route: 042
     Dates: start: 20190807
  11. CALCIUM LEVOFOLINATE [Concomitant]
     Active Substance: LEVOLEUCOVORIN CALCIUM
     Route: 042
     Dates: start: 20191105

REACTIONS (1)
  - Myelosuppression [Recovering/Resolving]
